FAERS Safety Report 21950211 (Version 1)
Quarter: 2023Q1

REPORT INFORMATION
  Report Type: Spontaneous
  Country: US (occurrence: None)
  Receive Date: 20230202
  Receipt Date: 20230202
  Transmission Date: 20230418
  Serious: Yes (Life-Threatening, Hospitalization)
  Sender: FDA-Public Use
  Company Number: None

PATIENT
  Age: 49 Year
  Sex: Female
  Weight: 60.75 kg

DRUGS (8)
  1. HUMIRA [Suspect]
     Active Substance: ADALIMUMAB
     Indication: Autoimmune disorder
     Dosage: OTHER FREQUENCY : EVERY OTHER WEEK;?OTHER ROUTE : INJECTED ON ABDOMEN;?
     Route: 050
     Dates: start: 20221125, end: 20230202
  2. HYDROXYCHLOROQUINE [Concomitant]
     Active Substance: HYDROXYCHLOROQUINE
  3. CEVEMILLE [Concomitant]
  4. ALBUTEROL [Concomitant]
     Active Substance: ALBUTEROL
  5. VITAMIN C [Concomitant]
     Active Substance: ASCORBIC ACID
  6. VITAMIN D [Concomitant]
     Active Substance: VITAMIN D NOS
  7. FISH OIL [Concomitant]
     Active Substance: FISH OIL
  8. PROBIOTICS NOS [Concomitant]
     Active Substance: PROBIOTICS NOS

REACTIONS (20)
  - Injection site pain [None]
  - Injection site swelling [None]
  - Injection site erythema [None]
  - Systemic lupus erythematosus [None]
  - Condition aggravated [None]
  - Rheumatoid arthritis [None]
  - Pyrexia [None]
  - Cardiac disorder [None]
  - Lung disorder [None]
  - Pain [None]
  - Abdominal pain [None]
  - Cerebrovascular accident [None]
  - Sinusitis [None]
  - Autoimmune disorder [None]
  - Arthropathy [None]
  - Nervous system disorder [None]
  - Bone disorder [None]
  - Pain [None]
  - Cerebral disorder [None]
  - Impaired work ability [None]

NARRATIVE: CASE EVENT DATE: 20230129
